FAERS Safety Report 6190400-4 (Version None)
Quarter: 2009Q2

REPORT INFORMATION
  Report Type: 
  Country: None (occurrence: None)
  Receive Date: 20090514
  Receipt Date: 20090507
  Transmission Date: 20091009
  Serious: Yes (Other)
  Sender: FDA-Public Use
  Company Number: B0573821A

PATIENT
  Age: 89 Year
  Sex: Male

DRUGS (2)
  1. AMOXICILLIN [Suspect]
  2. EXELON [Suspect]
     Route: 062
     Dates: start: 20080314

REACTIONS (3)
  - CONFUSIONAL STATE [None]
  - FALL [None]
  - LOWER RESPIRATORY TRACT INFECTION [None]
